FAERS Safety Report 15220495 (Version 1)
Quarter: 2018Q3

REPORT INFORMATION
  Report Type: Spontaneous
  Country: PT (occurrence: PT)
  Receive Date: 20180731
  Receipt Date: 20180731
  Transmission Date: 20181010
  Serious: Yes (Other)
  Sender: FDA-Public Use
  Company Number: PT-MYLANLABS-2018M1055236

PATIENT
  Sex: Female

DRUGS (8)
  1. TRASTUZUMAB. [Suspect]
     Active Substance: TRASTUZUMAB
     Indication: INVASIVE BREAST CARCINOMA
     Dosage: 600 MG, UNK
     Route: 058
     Dates: start: 201602, end: 201607
  2. TRASTUZUMAB EMTANSINE [Suspect]
     Active Substance: ADO-TRASTUZUMAB EMTANSINE
     Dosage: 3 MG/KG, UNK
     Route: 065
     Dates: start: 201709
  3. DOXORUBICIN [Suspect]
     Active Substance: DOXORUBICIN
     Indication: INVASIVE BREAST CARCINOMA
     Dosage: 60 MG/M2, UNK
     Route: 065
     Dates: start: 201602, end: 201607
  4. ANASTROZOLE. [Suspect]
     Active Substance: ANASTROZOLE
     Indication: INVASIVE BREAST CARCINOMA
     Dosage: 1 MG, QD
     Route: 065
     Dates: start: 201610
  5. DOCETAXEL. [Suspect]
     Active Substance: DOCETAXEL
     Indication: INVASIVE BREAST CARCINOMA
     Dosage: 100 MG/M2, UNK
     Route: 065
     Dates: start: 201602, end: 201607
  6. TRASTUZUMAB. [Suspect]
     Active Substance: TRASTUZUMAB
     Dosage: 600 MG, UNK
     Route: 058
     Dates: start: 201609
  7. CYCLOPHOSPHAMIDE. [Suspect]
     Active Substance: CYCLOPHOSPHAMIDE
     Indication: INVASIVE BREAST CARCINOMA
     Dosage: 600 MG/M2, UNK
     Route: 065
     Dates: start: 201602, end: 201607
  8. TRASTUZUMAB EMTANSINE [Suspect]
     Active Substance: ADO-TRASTUZUMAB EMTANSINE
     Indication: INVASIVE BREAST CARCINOMA
     Dosage: 6 MG/KG, UNK
     Route: 065

REACTIONS (6)
  - Epistaxis [Unknown]
  - Alopecia [Unknown]
  - Arthralgia [Unknown]
  - HER-2 positive breast cancer [Unknown]
  - Mucosal inflammation [Unknown]
  - Myalgia [Unknown]

NARRATIVE: CASE EVENT DATE: 201602
